FAERS Safety Report 17299158 (Version 2)
Quarter: 2020Q1

REPORT INFORMATION
  Report Type: Spontaneous
  Country: US (occurrence: US)
  Receive Date: 20200121
  Receipt Date: 20200127
  Transmission Date: 20200409
  Serious: No
  Sender: FDA-Public Use
  Company Number: US-009507513-2001USA006320

PATIENT
  Age: 38 Year
  Sex: Female

DRUGS (7)
  1. NORTREL (LEVONORGESTREL) [Concomitant]
     Active Substance: LEVONORGESTREL
  2. FOLLISTIM AQ [Suspect]
     Active Substance: FOLLITROPIN
  3. GANIRELIX ACETATE INJECTION [Suspect]
     Active Substance: GANIRELIX ACETATE
     Indication: INFERTILITY FEMALE
     Dosage: 250 MICROGRAM, QD
     Route: 058
     Dates: start: 20200107
  4. DOXYCYCLINE. [Concomitant]
     Active Substance: DOXYCYCLINE
  5. FOLLISTIM AQ [Suspect]
     Active Substance: FOLLITROPIN
     Indication: INFERTILITY FEMALE
     Dosage: STRENGTH: 900 IU/1.08 ML; 300 UNITS, QD, SUBCUTANEOUS(SQ)
     Route: 058
     Dates: start: 20200107
  6. OVIDREL [Concomitant]
     Active Substance: CHORIOGONADOTROPIN ALFA
  7. MENOPUR [Concomitant]
     Active Substance: FOLLITROPIN\LUTEINIZING HORMONE

REACTIONS (3)
  - Neck pain [Unknown]
  - Musculoskeletal stiffness [Unknown]
  - Back pain [Unknown]

NARRATIVE: CASE EVENT DATE: 202001
